FAERS Safety Report 4606697-5 (Version None)
Quarter: 2005Q1

REPORT INFORMATION
  Report Type: 
  Country: None (occurrence: None)
  Receive Date: 20050311
  Receipt Date: 20050225
  Transmission Date: 20050727
  Serious: Yes (Death)
  Sender: FDA-Public Use
  Company Number: TRP_0026_2004

PATIENT
  Age: 50 Year
  Sex: Female

DRUGS (13)
  1. RIBASPHERE [Suspect]
     Indication: HEPATITIS C
     Dosage: 1000 MG QDAY PO
     Route: 048
     Dates: start: 20040711, end: 20041008
  2. PEG-INTRON [Suspect]
     Indication: HEPATITIS C
     Dates: start: 20040711, end: 20041008
  3. ATENOLOL [Concomitant]
  4. CALCIUM GLUCONATE [Concomitant]
  5. CHLORPHENIRAMINE MALEATE [Concomitant]
  6. DIFLUCAN [Concomitant]
  7. METHOCARBAMOL [Concomitant]
  8. NEURONTIN [Concomitant]
  9. PHENYTOIN [Concomitant]
  10. PLAVIX [Concomitant]
  11. PREMARIN [Concomitant]
  12. TRAZODONE HCL [Concomitant]
  13. VITAMIN C [Concomitant]

REACTIONS (5)
  - COMA [None]
  - CONVULSION [None]
  - DEVICE FAILURE [None]
  - SHUNT OCCLUSION [None]
  - UNEVALUABLE EVENT [None]
